FAERS Safety Report 15403881 (Version 10)
Quarter: 2020Q3

REPORT INFORMATION
  Report Type: Report from Study
  Country: CA (occurrence: CA)
  Receive Date: 20180919
  Receipt Date: 20200824
  Transmission Date: 20201102
  Serious: Yes (Hospitalization, Other)
  Sender: FDA-Public Use
  Company Number: PHHY2017CA073598

PATIENT
  Age: 40 Year
  Sex: Male

DRUGS (3)
  1. SANDOSTATIN LAR DEPOT [Suspect]
     Active Substance: OCTREOTIDE ACETATE
     Indication: CARCINOID TUMOUR
     Dosage: 30 MG, QMO (EVERY 4 WEEKS)
     Route: 030
     Dates: start: 20170222, end: 20200817
  2. SANDOSTATIN LAR DEPOT [Suspect]
     Active Substance: OCTREOTIDE ACETATE
  3. SANDOSTATIN LAR DEPOT [Suspect]
     Active Substance: OCTREOTIDE ACETATE

REACTIONS (15)
  - Hepatic infection bacterial [Unknown]
  - Biliary tract infection [Recovering/Resolving]
  - Vomiting [Unknown]
  - Pyrexia [Unknown]
  - Cholangitis [Unknown]
  - Abdominal pain [Unknown]
  - Asthenia [Unknown]
  - Pain [Recovering/Resolving]
  - Abscess [Unknown]
  - Intestinal obstruction [Unknown]
  - Liver abscess [Unknown]
  - Malaise [Recovering/Resolving]
  - Weight decreased [Unknown]
  - Pancreatitis [Unknown]
  - Hypotension [Unknown]

NARRATIVE: CASE EVENT DATE: 2017
